FAERS Safety Report 14320044 (Version 1)
Quarter: 2017Q4

REPORT INFORMATION
  Report Type: Spontaneous
  Country: US (occurrence: US)
  Receive Date: 20171221
  Receipt Date: 20171221
  Transmission Date: 20180321
  Serious: Yes (Death)
  Sender: FDA-Public Use
  Company Number: None

PATIENT
  Age: 89 Year
  Sex: Male

DRUGS (2)
  1. JADENU [Suspect]
     Active Substance: DEFERASIROX
     Indication: HAEMOCHROMATOSIS
     Dosage: 360MG QAM AND QHS PO
     Route: 048
     Dates: start: 20150731, end: 20171108
  2. JADENU [Suspect]
     Active Substance: DEFERASIROX
     Indication: MYELODYSPLASTIC SYNDROME
     Dosage: 360MG QAM AND QHS PO
     Route: 048
     Dates: start: 20150731, end: 20171108

REACTIONS (1)
  - Death [None]

NARRATIVE: CASE EVENT DATE: 20171204
